FAERS Safety Report 12485435 (Version 2)
Quarter: 2019Q3

REPORT INFORMATION
  Report Type: Report from Study
  Country: US (occurrence: US)
  Receive Date: 20160621
  Receipt Date: 20190807
  Transmission Date: 20191004
  Serious: No
  Sender: FDA-Public Use
  Company Number: US-SA-2015SA096491

PATIENT
  Age: 39 Year
  Sex: Male

DRUGS (1)
  1. IMIGLUCERASE [Suspect]
     Active Substance: IMIGLUCERASE
     Indication: GAUCHER^S DISEASE
     Dosage: 3600.00 Q2
     Dates: start: 20170914

REACTIONS (2)
  - Paternal exposure timing unspecified [Unknown]
  - Unevaluable event [Unknown]
